FAERS Safety Report 21386032 (Version 2)
Quarter: 2022Q4

REPORT INFORMATION
  Report Type: Report from Study
  Country: US (occurrence: US)
  Receive Date: 20220928
  Receipt Date: 20221006
  Transmission Date: 20230112
  Serious: Yes (Death)
  Sender: FDA-Public Use
  Company Number: US-UCBSA-2022056572

PATIENT
  Sex: Female

DRUGS (1)
  1. LACOSAMIDE [Suspect]
     Active Substance: LACOSAMIDE
     Indication: Seizure
     Dosage: 10MG/ML-10ML AM AND 15MLPM
     Dates: end: 20220918

REACTIONS (2)
  - Infection [Fatal]
  - Product use issue [Unknown]
